FAERS Safety Report 8175206 (Version 7)
Quarter: 2016Q2

REPORT INFORMATION
  Report Type: Report from Study
  Country: US (occurrence: US)
  Receive Date: 20111011
  Receipt Date: 20160619
  Transmission Date: 20160815
  Serious: Yes (Hospitalization)
  Sender: FDA-Public Use
  Company Number: US-JNJFOC-20111001055

PATIENT
  Age: 16 Year
  Sex: Male
  Weight: 62.6 kg

DRUGS (7)
  1. AZATHIOPRINE. [Concomitant]
     Active Substance: AZATHIOPRINE
     Route: 065
  2. PREDNISONE. [Concomitant]
     Active Substance: PREDNISONE
     Route: 065
  3. 5-ASA [Concomitant]
     Active Substance: MESALAMINE
     Route: 048
  4. INFLIXIMAB, RECOMBINANT [Suspect]
     Active Substance: INFLIXIMAB
     Indication: INFLAMMATORY BOWEL DISEASE
     Route: 042
     Dates: start: 20080830, end: 20090814
  5. ADALIMUMAB [Concomitant]
     Active Substance: ADALIMUMAB
     Dates: start: 20091130
  6. ADALIMUMAB [Concomitant]
     Active Substance: ADALIMUMAB
     Dates: start: 20110521
  7. ADALIMUMAB [Concomitant]
     Active Substance: ADALIMUMAB
     Dates: start: 20110827, end: 20111110

REACTIONS (2)
  - Crohn^s disease [Recovered/Resolved]
  - Ileal stenosis [Recovered/Resolved]

NARRATIVE: CASE EVENT DATE: 20110901
